FAERS Safety Report 12081703 (Version 1)
Quarter: 2016Q1

REPORT INFORMATION
  Report Type: Spontaneous
  Country: US (occurrence: US)
  Receive Date: 20160216
  Receipt Date: 20160216
  Transmission Date: 20160526
  Serious: No
  Sender: FDA-Public Use
  Company Number: US-PERRIGO-15US008164

PATIENT
  Age: 8 Year
  Sex: Female
  Weight: 28.12 kg

DRUGS (1)
  1. IBUPROFEN. [Suspect]
     Active Substance: IBUPROFEN
     Indication: PAIN
     Dosage: 200 MG, SINGLE
     Route: 048
     Dates: start: 20150804, end: 20150804

REACTIONS (5)
  - Throat irritation [Recovered/Resolved]
  - Hypoaesthesia oral [Recovered/Resolved]
  - Pharyngeal hypoaesthesia [Recovered/Resolved]
  - Oral discomfort [Recovered/Resolved]
  - Hypersensitivity [Recovered/Resolved]

NARRATIVE: CASE EVENT DATE: 20150804
